FAERS Safety Report 6973471-4 (Version None)
Quarter: 2010Q3

REPORT INFORMATION
  Report Type: 
  Country: None (occurrence: None)
  Receive Date: 20100909
  Receipt Date: 20100830
  Transmission Date: 20110219
  Serious: Yes (Other)
  Sender: FDA-Public Use
  Company Number: US-PFIZER INC-2009294619

PATIENT
  Sex: Female
  Weight: 70.3 kg

DRUGS (7)
  1. TIKOSYN [Suspect]
     Indication: ATRIAL FIBRILLATION
     Dosage: FREQUENCY: 2X/DAY,
     Dates: start: 20080401
  2. LISINOPRIL [Concomitant]
     Indication: HYPERTENSION
     Dosage: 5 MG, UNK
  3. BABYPRIN [Concomitant]
     Dosage: UNK
  4. CENTRUM SILVER [Concomitant]
     Dosage: UNK
  5. PRILOSEC [Concomitant]
     Dosage: 30 MG, DAILY
  6. VITAMIN D [Concomitant]
     Dosage: UNK
  7. PREVACID [Concomitant]
     Dosage: 30 MG, 1X/DAY

REACTIONS (4)
  - ARRHYTHMIA [None]
  - DRUG INEFFECTIVE [None]
  - DYSPEPSIA [None]
  - GLAUCOMA [None]
